FAERS Safety Report 19165928 (Version 1)
Quarter: 2021Q2

REPORT INFORMATION
  Report Type: Spontaneous
  Country: FR (occurrence: FR)
  Receive Date: 20210422
  Receipt Date: 20210422
  Transmission Date: 20210717
  Serious: Yes (Hospitalization, Other)
  Sender: FDA-Public Use
  Company Number: FR-AUROBINDO-AUR-APL-2019-042206

PATIENT
  Age: 72 Year
  Sex: Male
  Weight: 53 kg

DRUGS (14)
  1. CEFTRIAXONE. [Suspect]
     Active Substance: CEFTRIAXONE
     Indication: ABDOMINAL INFECTION
     Dosage: 1 GRAM, ONCE A DAY
     Route: 042
     Dates: start: 20190214, end: 20190217
  2. TAZOBACTAM [Suspect]
     Active Substance: TAZOBACTAM
     Indication: ABDOMINAL INFECTION
     Dosage: 1500 MILLIGRAM, ONCE A DAY
     Route: 042
     Dates: start: 20190218, end: 20190311
  3. LOVENOX [Concomitant]
     Active Substance: ENOXAPARIN SODIUM
     Indication: THROMBOSIS PROPHYLAXIS
     Dosage: 1 DOSAGE FORM, ONCE A DAY
     Route: 058
     Dates: start: 201812
  4. LANSOPRAZOLE. [Concomitant]
     Active Substance: LANSOPRAZOLE
     Indication: PROPHYLAXIS AGAINST GASTROINTESTINAL ULCER
     Dosage: 30 MILLIGRAM, ONCE A DAY
     Route: 048
  5. CILASTATIN SODIUM [Suspect]
     Active Substance: CILASTATIN SODIUM
     Indication: ABDOMINAL INFECTION
     Dosage: 3 GRAM, ONCE A DAY
     Route: 042
     Dates: start: 20190319, end: 20190330
  6. NEBIVOLOL. [Concomitant]
     Active Substance: NEBIVOLOL
     Indication: HYPERTENSION
     Dosage: 2.5 MILLIGRAM, ONCE A DAY
     Route: 048
  7. IMIPENEM [Suspect]
     Active Substance: IMIPENEM
     Indication: ABDOMINAL INFECTION
     Dosage: 3 GRAM, ONCE A DAY
     Route: 042
     Dates: start: 20190319, end: 20190330
  8. PIPERACILLINE [Suspect]
     Active Substance: PIPERACILLIN SODIUM
     Indication: ABDOMINAL INFECTION
     Dosage: 12 GRAM, ONCE A DAY
     Route: 042
     Dates: start: 20190218, end: 20190311
  9. AMIKACINE [Suspect]
     Active Substance: AMIKACIN
     Indication: INFECTION
     Dosage: 1080 MILLIGRAM, TOTAL
     Route: 042
     Dates: start: 20190319, end: 20190319
  10. RELVAR ELLIPTA [Concomitant]
     Active Substance: FLUTICASONE FUROATE\VILANTEROL TRIFENATATE
     Indication: CHRONIC OBSTRUCTIVE PULMONARY DISEASE
     Dosage: 1 DOSAGE FORM, ONCE A DAY
     Route: 055
  11. PARACETAMOL [Concomitant]
     Active Substance: ACETAMINOPHEN
     Indication: PAIN
     Dosage: 4 GRAM, ONCE A DAY
     Route: 042
  12. SALBUTAMOL [Concomitant]
     Active Substance: ALBUTEROL
     Indication: CHRONIC OBSTRUCTIVE PULMONARY DISEASE
     Dosage: 2.5 MILLIGRAM
     Route: 055
  13. LACTULOSE. [Concomitant]
     Active Substance: LACTULOSE
     Indication: CONSTIPATION
     Dosage: 20 GRAM, ONCE A DAY
     Route: 048
  14. METRONIDAZOLE. [Suspect]
     Active Substance: METRONIDAZOLE
     Indication: ABDOMINAL INFECTION
     Dosage: 1500 MILLIGRAM, ONCE A DAY
     Route: 042
     Dates: start: 20190214, end: 20190217

REACTIONS (1)
  - Clostridium difficile infection [Recovering/Resolving]

NARRATIVE: CASE EVENT DATE: 20190322
